FAERS Safety Report 10537664 (Version 1)
Quarter: 2014Q4

REPORT INFORMATION
  Report Type: Report from Study
  Country: KR (occurrence: KR)
  Receive Date: 20141023
  Receipt Date: 20141023
  Transmission Date: 20150529
  Serious: No
  Sender: FDA-Public Use
  Company Number: PHHY2014KR136431

PATIENT
  Age: 75 Year
  Sex: Male

DRUGS (8)
  1. FERROBA-U [Concomitant]
     Indication: ANAEMIA PROPHYLAXIS
     Dosage: 160 MG, UNK
     Route: 048
     Dates: start: 20121122
  2. NEXIUM [Concomitant]
     Active Substance: ESOMEPRAZOLE MAGNESIUM
     Indication: PROPHYLAXIS AGAINST GASTROINTESTINAL ULCER
     Dosage: 20 MG, UNK
     Route: 048
     Dates: start: 20130129
  3. CONOFEN [Concomitant]
     Indication: PAIN PROPHYLAXIS
     Dosage: 6 DF, UNK
     Route: 048
     Dates: start: 20130129
  4. STABLON [Concomitant]
     Active Substance: TIANEPTINE
     Indication: PROPHYLAXIS
     Dosage: 30 MG, UNK
     Route: 048
     Dates: start: 20121122, end: 20130129
  5. MUCOSTA [Concomitant]
     Active Substance: REBAMIPIDE
     Indication: PROPHYLAXIS AGAINST GASTROINTESTINAL ULCER
     Dosage: 300 MG, UNK
     Route: 048
     Dates: start: 20121122
  6. LANSTON [Concomitant]
     Active Substance: LANSOPRAZOLE
     Indication: PROPHYLAXIS AGAINST GASTROINTESTINAL ULCER
     Dosage: 30 MG, UNK
     Route: 048
     Dates: start: 20121122, end: 20130129
  7. MOSAONE [Concomitant]
     Indication: PROPHYLAXIS OF NAUSEA AND VOMITING
     Dosage: 15 MG, UNK
     Route: 048
     Dates: start: 20121122
  8. AMN107 [Suspect]
     Active Substance: NILOTINIB
     Indication: CHRONIC MYELOID LEUKAEMIA
     Dosage: 300 MG, QD
     Route: 048
     Dates: start: 20121103

REACTIONS (1)
  - Hyperglycaemia [Recovered/Resolved]

NARRATIVE: CASE EVENT DATE: 20121218
